FAERS Safety Report 6599155-2 (Version None)
Quarter: 2010Q1

REPORT INFORMATION
  Report Type: 
  Country: None (occurrence: None)
  Receive Date: 20100217
  Receipt Date: 20100127
  Transmission Date: 20100710
  Serious: Yes (Life-Threatening, Hospitalization)
  Sender: FDA-Public Use
  Company Number: 2010AL000678

PATIENT
  Age: 73 Year
  Sex: Female

DRUGS (2)
  1. RAMIPRIL [Suspect]
     Indication: HYPERTENSION
     Dosage: PO
     Route: 048
  2. HYDROCHLOROTHIAZIDE [Concomitant]

REACTIONS (1)
  - ANAPHYLACTIC SHOCK [None]
